FAERS Safety Report 9674764 (Version 2)
Quarter: 2013Q4

REPORT INFORMATION
  Report Type: Spontaneous
  Country: US (occurrence: US)
  Receive Date: 20131107
  Receipt Date: 20131210
  Transmission Date: 20140711
  Serious: Yes (Other)
  Sender: FDA-Public Use
  Company Number: US-JNJFOC-20131019151

PATIENT
  Age: 45 Year
  Sex: Female
  Weight: 85 kg

DRUGS (9)
  1. REMICADE [Suspect]
     Indication: RHEUMATOID ARTHRITIS
     Route: 042
     Dates: start: 20010716
  2. AMLODIPINE [Concomitant]
     Indication: HYPERTENSION
     Dosage: DATES OF THERAPY ^PCP^
     Route: 065
  3. ERGOCALCIFEROL [Concomitant]
     Indication: VITAMIN SUPPLEMENTATION
     Dosage: DATES OF THERAPY ^PCP^
     Route: 065
  4. GABAPENTIN [Concomitant]
     Dosage: DATES OF THERAPY ^PCP^
     Route: 065
  5. GEMFIBROZIL [Concomitant]
     Dosage: DATES OF THERAPY ^PCP^
     Route: 065
  6. TRAMADOL [Concomitant]
     Indication: PAIN
     Route: 065
     Dates: start: 20120320
  7. PREMPRO [Concomitant]
     Dosage: 0.3 MG-1.5 MG FOR ^PCP^??DATES OF THERAPY ^PCP^
     Route: 065
  8. TEMAZEPAM [Concomitant]
     Dosage: DATES OF THERAPY ^PCP^
     Route: 065
  9. VENLAFAXINE [Concomitant]
     Dosage: DATES OF THERAPY ^PCP^
     Route: 065

REACTIONS (3)
  - IgA nephropathy [Not Recovered/Not Resolved]
  - Renal failure chronic [Unknown]
  - Pain [Unknown]
